FAERS Safety Report 5448693-4 (Version None)
Quarter: 2007Q3

REPORT INFORMATION
  Report Type: 
  Country: None (occurrence: None)
  Receive Date: 20070911
  Receipt Date: 20070904
  Transmission Date: 20080115
  Serious: Yes (Other)
  Sender: FDA-Public Use
  Company Number: A0678429A

PATIENT
  Age: 68 Year
  Sex: Male

DRUGS (2)
  1. ADVAIR DISKUS 100/50 [Suspect]
     Indication: CHRONIC OBSTRUCTIVE PULMONARY DISEASE
     Dosage: 1PUFF PER DAY
     Route: 055
     Dates: start: 20020101
  2. LIPITOR [Concomitant]
     Route: 048

REACTIONS (5)
  - ABNORMAL SENSATION IN EYE [None]
  - ASTHENOPIA [None]
  - EYE PAIN [None]
  - GLAUCOMA [None]
  - VISUAL ACUITY REDUCED [None]
